APPROVED DRUG PRODUCT: BAXDELA
Active Ingredient: DELAFLOXACIN MEGLUMINE
Strength: EQ 450MG BASE
Dosage Form/Route: TABLET;ORAL
Application: N208610 | Product #001
Applicant: MELINTA SUBSIDIARY CORP
Approved: Jun 19, 2017 | RLD: Yes | RS: Yes | Type: RX

PATENTS:
Patent 8252813 | Expires: Oct 2, 2026
Patent 8871938 | Expires: Sep 23, 2029
Patent 8273892 | Expires: Aug 6, 2026
Patent 7728143 | Expires: Jun 19, 2031
Patent RE46617 | Expires: Dec 28, 2029

EXCLUSIVITY:
Code: NCE | Date: Jun 19, 2022
Code: GAIN | Date: Jun 19, 2027